FAERS Safety Report 25649608 (Version 1)
Quarter: 2025Q3

REPORT INFORMATION
  Report Type: Spontaneous
  Country: US (occurrence: None)
  Receive Date: 20250805
  Receipt Date: 20250805
  Transmission Date: 20251020
  Serious: No
  Sender: FDA-CTU
  Company Number: None

PATIENT
  Age: 49 Year
  Sex: Female

DRUGS (1)
  1. ORENCIA [Suspect]
     Active Substance: ABATACEPT

REACTIONS (4)
  - Nausea [None]
  - Diarrhoea [None]
  - Intentional dose omission [None]
  - Sinusitis [None]

NARRATIVE: CASE EVENT DATE: 20250724
